FAERS Safety Report 16114555 (Version 1)
Quarter: 2019Q1

REPORT INFORMATION
  Report Type: Spontaneous
  Country: FR (occurrence: FR)
  Receive Date: 20190325
  Receipt Date: 20190325
  Transmission Date: 20190418
  Serious: Yes (Life-Threatening, Hospitalization)
  Sender: FDA-Public Use
  Company Number: FR-PFIZER INC-2019124068

PATIENT
  Age: 25 Year
  Sex: Male

DRUGS (5)
  1. TERCIAN [CYAMEMAZINE TARTRATE] [Suspect]
     Active Substance: CYAMEMAZINE
     Dosage: 1500 MG, SINGLE
     Route: 048
     Dates: start: 20180522, end: 20180522
  2. EFFEXOR LP [Suspect]
     Active Substance: VENLAFAXINE HYDROCHLORIDE
     Dosage: 4500 MG, SINGLE
     Route: 048
     Dates: start: 20180522, end: 20180522
  3. TRANXENE [Suspect]
     Active Substance: CLORAZEPATE DIPOTASSIUM
     Dosage: 750 MG, SINGLE
     Route: 048
     Dates: start: 20180522, end: 20180522
  4. TRANXENE [Suspect]
     Active Substance: CLORAZEPATE DIPOTASSIUM
     Dosage: 600 MG, SINGLE
     Route: 048
     Dates: start: 20180522, end: 20180522
  5. PROPRANOLOL [Suspect]
     Active Substance: PROPRANOLOL HYDROCHLORIDE
     Dosage: 1500 MG, SINGLE
     Route: 048
     Dates: start: 20180522, end: 20180522

REACTIONS (5)
  - Poisoning deliberate [Recovered/Resolved]
  - Hypotension [Recovered/Resolved]
  - Overdose [Recovering/Resolving]
  - Bradycardia [Recovering/Resolving]
  - Coma [Recovering/Resolving]

NARRATIVE: CASE EVENT DATE: 20180522
